FAERS Safety Report 9386739 (Version 1)
Quarter: 2013Q3

REPORT INFORMATION
  Report Type: Spontaneous
  Country: US (occurrence: None)
  Receive Date: 20130703
  Receipt Date: 20130703
  Transmission Date: 20140515
  Serious: No
  Sender: FDA-Public Use
  Company Number: None

PATIENT
  Age: 63 None
  Sex: 0

DRUGS (1)
  1. ENBREL SURECLICK [Suspect]
     Indication: PSORIASIS
     Route: 058
     Dates: start: 20130111, end: 20130616

REACTIONS (2)
  - Rash [None]
  - Rash [None]
